FAERS Safety Report 21997918 (Version 1)
Quarter: 2023Q1

REPORT INFORMATION
  Report Type: Report from Study
  Country: BR (occurrence: None)
  Receive Date: 20230216
  Receipt Date: 20230216
  Transmission Date: 20230417
  Serious: Yes (Other)
  Sender: FDA-Public Use
  Company Number: 2023A035565

PATIENT
  Age: 68 Year
  Sex: Female

DRUGS (9)
  1. DAPAGLIFLOZIN [Suspect]
     Active Substance: DAPAGLIFLOZIN
     Indication: Blood glucose increased
     Dosage: A TABLET
     Route: 048
     Dates: start: 202107
  2. DAPAGLIFLOZIN [Suspect]
     Active Substance: DAPAGLIFLOZIN
     Indication: Surgery
     Dosage: A TABLET
     Route: 048
     Dates: start: 202107
  3. LOSARTAN [Concomitant]
     Active Substance: LOSARTAN
  4. CLOPIDOGREL BISULFATE [Concomitant]
     Active Substance: CLOPIDOGREL BISULFATE
  5. CARVEDILOL [Concomitant]
     Active Substance: CARVEDILOL
  6. ATORVASTATIN [Concomitant]
     Active Substance: ATORVASTATIN
  7. SERTRALINE [Concomitant]
     Active Substance: SERTRALINE HYDROCHLORIDE
     Dosage: 50.0MG UNKNOWN
     Dates: start: 2022
  8. SPIRONOLACTONE [Concomitant]
     Active Substance: SPIRONOLACTONE
     Dosage: 25.0MG UNKNOWN
  9. GLIFAGE [Concomitant]
     Active Substance: METFORMIN HYDROCHLORIDE

REACTIONS (6)
  - Ischaemic stroke [Unknown]
  - Paralysis [Recovering/Resolving]
  - Monoplegia [Recovering/Resolving]
  - Malaise [Unknown]
  - Mouth injury [Unknown]
  - Gait disturbance [Recovering/Resolving]

NARRATIVE: CASE EVENT DATE: 20221001
